FAERS Safety Report 12092391 (Version 1)
Quarter: 2016Q1

REPORT INFORMATION
  Report Type: Spontaneous
  Country: US (occurrence: None)
  Receive Date: 20160217
  Receipt Date: 20160217
  Transmission Date: 20160526
  Serious: Yes (Hospitalization)
  Sender: FDA-Public Use
  Company Number: None

PATIENT
  Age: 24 Year
  Sex: Female
  Weight: 59 kg

DRUGS (1)
  1. BACTRIM DS [Suspect]
     Active Substance: SULFAMETHOXAZOLE\TRIMETHOPRIM
     Indication: URINARY TRACT INFECTION
     Dosage: 800MG/160MG TABLET BID PO
     Route: 048
     Dates: start: 20160111, end: 20160117

REACTIONS (7)
  - Pancytopenia [None]
  - Nausea [None]
  - Pyrexia [None]
  - Back pain [None]
  - Syncope [None]
  - Blood electrolytes abnormal [None]
  - Vomiting [None]

NARRATIVE: CASE EVENT DATE: 20160117
